FAERS Safety Report 9296795 (Version 2)
Quarter: 2013Q2

REPORT INFORMATION
  Report Type: Report from Study
  Country: FR (occurrence: FR)
  Receive Date: 20130517
  Receipt Date: 20130606
  Transmission Date: 20140414
  Serious: Yes (Hospitalization)
  Sender: FDA-Public Use
  Company Number: FR-ABBOTT-13P-056-1086729-00

PATIENT
  Age: 37 Year
  Sex: Male

DRUGS (6)
  1. CYTEAL [Concomitant]
     Indication: HIDRADENITIS
     Dosage: 20 % M/V
     Route: 061
     Dates: start: 20121210
  2. PARACETAMOL [Concomitant]
     Indication: HIDRADENITIS
     Route: 048
     Dates: start: 20121224
  3. PARACETAMOL [Concomitant]
     Indication: HEADACHE
  4. RETINOIDS FOR TREATMENT OF PSORIASIS [Concomitant]
     Indication: HIDRADENITIS
  5. PLACEBO [Suspect]
     Indication: HIDRADENITIS
     Route: 058
     Dates: start: 20121210, end: 20130429
  6. PLACEBO [Suspect]
     Route: 058
     Dates: start: 20130513

REACTIONS (1)
  - Renal colic [Recovered/Resolved]
